FAERS Safety Report 13819004 (Version 1)
Quarter: 2017Q3

REPORT INFORMATION
  Report Type: Spontaneous
  Country: US (occurrence: US)
  Receive Date: 20170731
  Receipt Date: 20170731
  Transmission Date: 20171127
  Serious: Yes (Hospitalization)
  Sender: FDA-Public Use
  Company Number: None

PATIENT
  Age: 46 Year
  Sex: Male

DRUGS (5)
  1. PROTONIX [Concomitant]
     Active Substance: PANTOPRAZOLE SODIUM
  2. PREDNISONE. [Concomitant]
     Active Substance: PREDNISONE
  3. ENBREL [Suspect]
     Active Substance: ETANERCEPT
     Indication: PSORIASIS
  4. SODIUM HYALURONATE [Concomitant]
     Active Substance: HYALURONATE SODIUM
  5. EUFLEXXA [Suspect]
     Active Substance: HYALURONATE SODIUM
     Indication: OSTEOARTHRITIS
     Dosage: 10MG/ML WEEKLY SUB-Q
     Route: 058
     Dates: start: 20160525

REACTIONS (2)
  - Abdominal pain [None]
  - Pain [None]
